FAERS Safety Report 5504935-8 (Version None)
Quarter: 2007Q4

REPORT INFORMATION
  Report Type: 
  Country: None (occurrence: None)
  Receive Date: 20071102
  Receipt Date: 20071023
  Transmission Date: 20080405
  Serious: Yes (Other)
  Sender: FDA-Public Use
  Company Number: US-JNJFOC-20071006008

PATIENT
  Sex: Female
  Weight: 63.5 kg

DRUGS (6)
  1. REMICADE [Suspect]
     Route: 042
     Dates: start: 20070401
  2. REMICADE [Suspect]
     Route: 042
     Dates: start: 20070401
  3. REMICADE [Suspect]
     Route: 042
     Dates: start: 20070401
  4. REMICADE [Suspect]
     Indication: JUVENILE ARTHRITIS
     Route: 042
     Dates: start: 20070401
  5. METHOTREXATE [Concomitant]
  6. PREDNISONE [Concomitant]

REACTIONS (2)
  - INFUSION RELATED REACTION [None]
  - MIGRAINE [None]
